FAERS Safety Report 15258175 (Version 2)
Quarter: 2018Q3

REPORT INFORMATION
  Report Type: Spontaneous
  Country: US (occurrence: US)
  Receive Date: 20180809
  Receipt Date: 20180824
  Transmission Date: 20181010
  Serious: Yes (Death, Hospitalization, Other)
  Sender: FDA-Public Use
  Company Number: US-B.I. PHARMACEUTICALS,INC./RIDGEFIELD-2018-BI-040160

PATIENT
  Age: 84 Year
  Sex: Male

DRUGS (1)
  1. SPIRIVA [Suspect]
     Active Substance: TIOTROPIUM BROMIDE MONOHYDRATE
     Indication: CHRONIC OBSTRUCTIVE PULMONARY DISEASE
     Dosage: 1 CAPSULE PER DAY;  FORM STRENGTH: 18 MCG;  ?ACTION(S) TAKEN WITH PRODUCT: NOT APPLICABLE
     Route: 055
     Dates: start: 2017

REACTIONS (3)
  - Hepatic infection [Fatal]
  - Pneumothorax [Unknown]
  - Cholecystitis infective [Fatal]

NARRATIVE: CASE EVENT DATE: 201807
